FAERS Safety Report 20527626 (Version 1)
Quarter: 2022Q1

REPORT INFORMATION
  Report Type: Spontaneous
  Country: US (occurrence: US)
  Receive Date: 20220228
  Receipt Date: 20220228
  Transmission Date: 20220423
  Serious: Yes (Death, Other)
  Sender: FDA-Public Use
  Company Number: US-NOVARTISPH-NVSC2022US046806

PATIENT
  Age: 72 Year
  Sex: Male

DRUGS (9)
  1. RANITIDINE [Suspect]
     Active Substance: RANITIDINE
     Dosage: 150 MG,,DAILY,
     Route: 048
     Dates: start: 200403, end: 201911
  2. RANITIDINE [Suspect]
     Active Substance: RANITIDINE
     Indication: Dyspepsia
  3. RANITIDINE [Suspect]
     Active Substance: RANITIDINE
     Indication: Gastrooesophageal reflux disease
  4. RANITIDINE [Suspect]
     Active Substance: RANITIDINE
     Dosage: 150 MG,,DAILY,
     Route: 048
     Dates: start: 200403, end: 201911
  5. RANITIDINE [Suspect]
     Active Substance: RANITIDINE
     Indication: Dyspepsia
  6. RANITIDINE [Suspect]
     Active Substance: RANITIDINE
     Indication: Gastrooesophageal reflux disease
  7. RANITIDINE [Suspect]
     Active Substance: RANITIDINE
     Dosage: ,50 MG/ML,,UNKNOWN AT THIS TIME,,DAILY,
     Route: 048
     Dates: start: 200403, end: 201911
  8. RANITIDINE [Suspect]
     Active Substance: RANITIDINE
     Indication: Dyspepsia
  9. RANITIDINE [Suspect]
     Active Substance: RANITIDINE
     Indication: Gastrooesophageal reflux disease

REACTIONS (8)
  - Bladder cancer [Unknown]
  - Renal cancer [Unknown]
  - Lung neoplasm malignant [Unknown]
  - Brain neoplasm malignant [Unknown]
  - Prostate cancer [Unknown]
  - Bone cancer [Unknown]
  - Death [Fatal]
  - Incorrect dose administered [Unknown]

NARRATIVE: CASE EVENT DATE: 20190601
